FAERS Safety Report 9301017 (Version 1)
Quarter: 2013Q2

REPORT INFORMATION
  Report Type: Spontaneous
  Country: US (occurrence: US)
  Receive Date: 20130521
  Receipt Date: 20130521
  Transmission Date: 20140414
  Serious: Yes (Other)
  Sender: FDA-Public Use
  Company Number: US-SHIRE-ALL1-2013-03272

PATIENT
  Age: 50 Year
  Sex: Female
  Weight: 74.83 kg

DRUGS (7)
  1. ADDERALL XR [Suspect]
     Indication: MENOPAUSE
     Dosage: 30 MG, 1X/DAY:QD (TWO 15 MG CAPSULES TAKEN ONCE DAILY AS REQ^D)
     Route: 048
     Dates: start: 201103
  2. ADDERALL XR [Suspect]
     Dosage: 15 MG, AS REQ^D(ONE IN AM AND ONE IN PM AS REQ^D)
     Dates: start: 201103
  3. LEXAPRO [Concomitant]
     Indication: ANXIETY
     Dosage: 15 MG, 1X/DAY:QD
     Route: 048
     Dates: start: 2010
  4. LEXAPRO [Concomitant]
     Indication: DEPRESSION
  5. LIPITOR [Concomitant]
     Indication: BLOOD TRIGLYCERIDES INCREASED
     Dosage: 10 MG, 1X/DAY:QD
     Route: 048
     Dates: start: 2012
  6. LORAZEPAM [Concomitant]
     Indication: ANXIETY
     Dosage: 0.5 MG, AS REQ^D
     Route: 048
     Dates: start: 2003
  7. DIOVAN HCT [Concomitant]
     Indication: HYPERTENSION
     Dosage: 1 DF, 1X/DAY:QD (160/12.5 TABLET DAILY)
     Route: 048
     Dates: start: 2008

REACTIONS (7)
  - Suicidal ideation [Recovered/Resolved]
  - Malaise [Recovered/Resolved]
  - Palpitations [Recovered/Resolved]
  - Agitation [Recovered/Resolved]
  - Gastrointestinal disorder [Recovered/Resolved]
  - Inappropriate schedule of drug administration [Not Recovered/Not Resolved]
  - Off label use [Not Recovered/Not Resolved]
